FAERS Safety Report 20868616 (Version 1)
Quarter: 2022Q2

REPORT INFORMATION
  Report Type: Spontaneous
  Country: US (occurrence: US)
  Receive Date: 20220524
  Receipt Date: 20220524
  Transmission Date: 20220721
  Serious: No
  Sender: FDA-Public Use
  Company Number: US-BAUSCH-BL-2022-012250

PATIENT
  Sex: Female

DRUGS (1)
  1. OPCON-A [Suspect]
     Active Substance: NAPHAZOLINE HYDROCHLORIDE\PHENIRAMINE MALEATE
     Indication: Hypersensitivity
     Route: 065

REACTIONS (4)
  - Instillation site pain [Unknown]
  - Instillation site erythema [Recovered/Resolved]
  - Instillation site discharge [Recovered/Resolved]
  - Conjunctivitis [Recovered/Resolved]
